FAERS Safety Report 6526703-0 (Version None)
Quarter: 2009Q4

REPORT INFORMATION
  Report Type: 
  Country: None (occurrence: None)
  Receive Date: 20091230
  Receipt Date: 20091222
  Transmission Date: 20100525
  Serious: Yes (Other)
  Sender: FDA-Public Use
  Company Number: VALS20090017

PATIENT
  Age: 87 Year
  Sex: Female

DRUGS (16)
  1. VALSARTAN [Suspect]
     Indication: BLADDER CANCER
     Dosage: INTRAVESICAL
     Route: 043
     Dates: start: 20091104, end: 20091104
  2. VESICARE [Concomitant]
  3. ENABLEX (DARIFENACIN) [Concomitant]
  4. MACROBID [Concomitant]
  5. ZYRTEC [Concomitant]
  6. EFFEXOR (VENLAFAXINE) (VENLAFAXINE) [Concomitant]
  7. TOPROL (METOPROLOL SUCCINATE) (METOPROLOL SUCCINATE) [Concomitant]
  8. CARBOLERO [Concomitant]
  9. VITAMIN E (TOCOPHEROL) (TOCOPHEROL) [Concomitant]
  10. VITAMINS (ERGOCALCIFEROL, ASCORBIC ACID, THIAMINE HYDROCHLORIDE, RETIN [Concomitant]
  11. AMBIEN [Concomitant]
  12. OMEPRAZOLE [Concomitant]
  13. EVISTA (RALOXIFENE) (RALOXIFENE) [Concomitant]
  14. LIPITOR (ATORVASTATIN CALCIUM) (ATORVASTATIN CALCIUM) [Concomitant]
  15. ASA (ACETYLSALICYLIC ACID) (ACETYLSALICYLIC ACID) [Concomitant]
  16. IRON (IRON) (IRON) [Concomitant]

REACTIONS (7)
  - DISORIENTATION [None]
  - FALL [None]
  - HALLUCINATION [None]
  - INJURY [None]
  - MALAISE [None]
  - OSTEOARTHRITIS [None]
  - URINARY RETENTION [None]
